FAERS Safety Report 7483737-X (Version None)
Quarter: 2011Q2

REPORT INFORMATION
  Report Type: 
  Country: None (occurrence: None)
  Receive Date: 20110517
  Receipt Date: 20110503
  Transmission Date: 20111010
  Serious: Yes (Hospitalization, Other)
  Sender: FDA-Public Use
  Company Number: US-ELI_LILLY_AND_COMPANY-US201104001288

PATIENT
  Sex: Female

DRUGS (16)
  1. EVISTA [Suspect]
     Indication: HORMONE LEVEL ABNORMAL
     Dosage: 1 DF, UNK
  2. GLUCOSAMINE SULFATE [Concomitant]
  3. MIRALAX [Concomitant]
  4. EVISTA [Suspect]
     Dosage: 60 MG, UNK
     Dates: start: 20110201, end: 20110303
  5. FORTEO [Suspect]
     Indication: MENOPAUSE
     Dosage: 20 UG, QD
     Dates: end: 20110303
  6. PRAMIPEXOLE DIHYDROCHLORIDE [Concomitant]
  7. OXOBEMIN [Concomitant]
  8. CALCIUM [Concomitant]
  9. LEVOXYL [Concomitant]
  10. LISINOPRIL [Concomitant]
  11. LOVASTATIN [Concomitant]
  12. MELATONIN [Concomitant]
  13. FORTEO [Suspect]
     Dosage: 20 UG, QD
     Dates: start: 20110331
  14. OXYCONTIN [Concomitant]
  15. ALIGN [Concomitant]
  16. DOCUSATE [Concomitant]

REACTIONS (4)
  - BONE PAIN [None]
  - SURGERY [None]
  - DEVICE FAILURE [None]
  - OFF LABEL USE [None]
